FAERS Safety Report 26127929 (Version 1)
Quarter: 2025Q4

REPORT INFORMATION
  Report Type: Spontaneous
  Country: US (occurrence: US)
  Receive Date: 20251206
  Receipt Date: 20251206
  Transmission Date: 20260118
  Serious: Yes (Hospitalization, Other)
  Sender: AMGEN
  Company Number: US-AMGEN-USASP2025236398

PATIENT

DRUGS (3)
  1. IMLYGIC [Suspect]
     Active Substance: TALIMOGENE LAHERPAREPVEC
     Indication: Malignant melanoma
     Dosage: UNK (TREATMENT WAS INITIATED WITH A TEST DOSE OF 10^6 PFU/ML)
     Route: 026
  2. IMLYGIC [Suspect]
     Active Substance: TALIMOGENE LAHERPAREPVEC
     Dosage: UNK (AFTER THE INITIAL DOSE, INJECTIONS WERE COMPLETED WITH 10^8 PFU/ML, 0.1 ML PER CM2 OF THE LESIO
     Route: 026
  3. PEMBROLIZUMAB [Suspect]
     Active Substance: PEMBROLIZUMAB
     Indication: Malignant melanoma
     Dosage: UNK
     Route: 065

REACTIONS (11)
  - Systemic immune activation [Unknown]
  - Malignant melanoma [Unknown]
  - Fatigue [Unknown]
  - Pain [Unknown]
  - Headache [Unknown]
  - Ill-defined disorder [Unknown]
  - Therapy non-responder [Unknown]
  - Pyrexia [Unknown]
  - Chills [Unknown]
  - Therapy partial responder [Unknown]
  - Off label use [Unknown]
